FAERS Safety Report 18732021 (Version 2)
Quarter: 2021Q1

REPORT INFORMATION
  Report Type: Report from Study
  Country: US (occurrence: US)
  Receive Date: 20210112
  Receipt Date: 20210121
  Transmission Date: 20210419
  Serious: Yes (Other)
  Sender: FDA-Public Use
  Company Number: US-BAUSCH-BL-2021-000488

PATIENT
  Age: 72 Year
  Sex: Female

DRUGS (1)
  1. BALSALAZIDE DISODIUM. [Suspect]
     Active Substance: BALSALAZIDE DISODIUM
     Indication: CROHN^S DISEASE
     Route: 048

REACTIONS (4)
  - Internal haemorrhage [Recovered/Resolved]
  - Diarrhoea [Recovered/Resolved]
  - Inability to afford medication [Unknown]
  - Product substitution issue [Unknown]

NARRATIVE: CASE EVENT DATE: 2012
